FAERS Safety Report 9057404 (Version 1)
Quarter: 2013Q1

REPORT INFORMATION
  Report Type: Spontaneous
  Country: JP (occurrence: JP)
  Receive Date: 20130204
  Receipt Date: 20130204
  Transmission Date: 20140127
  Serious: Yes (Hospitalization)
  Sender: FDA-Public Use
  Company Number: JP-OTSUKA-JP-2011-11666

PATIENT
  Age: 81 Year
  Sex: Male

DRUGS (1)
  1. PLETAAL [Suspect]
     Dosage: UNK
     Route: 048
     Dates: start: 201109

REACTIONS (3)
  - Cardiac disorder [Recovering/Resolving]
  - Palpitations [Unknown]
  - Headache [Unknown]
